FAERS Safety Report 5044936-X (Version None)
Quarter: 2006Q3

REPORT INFORMATION
  Report Type: 
  Country: None (occurrence: None)
  Receive Date: 20060707
  Receipt Date: 20060703
  Transmission Date: 20061208
  Serious: Yes (Hospitalization)
  Sender: FDA-Public Use
  Company Number: PHRM2006FR01956

PATIENT
  Age: 44 Year
  Sex: Male

DRUGS (2)
  1. NEORAL [Suspect]
     Indication: GRAFT VERSUS HOST DISEASE
     Route: 048
     Dates: start: 20060327, end: 20060520
  2. CELLCEPT [Concomitant]

REACTIONS (3)
  - BLOOD CREATININE INCREASED [None]
  - PHLEBITIS [None]
  - RENAL FAILURE [None]
